FAERS Safety Report 14122471 (Version 1)
Quarter: 2017Q4

REPORT INFORMATION
  Report Type: Spontaneous
  Country: DE (occurrence: AU)
  Receive Date: 20171024
  Receipt Date: 20171024
  Transmission Date: 20180321
  Serious: Yes (Other)
  Sender: FDA-Public Use
  Company Number: AU-MERZ NORTH AMERICA, INC.-17MRZ-00321

PATIENT
  Age: 46 Year
  Sex: Female

DRUGS (1)
  1. XEOMIN [Suspect]
     Active Substance: INCOBOTULINUMTOXINA
     Indication: OESOPHAGEAL ACHALASIA
     Dosage: 100 IU (IN 0.5 ML ALIQUOTS), 1 IN 1 TOTAL

REACTIONS (5)
  - Liver abscess [Recovered/Resolved]
  - Oesophageal infection [Recovered/Resolved]
  - Off label use [Recovered/Resolved]
  - Mediastinitis [Recovered/Resolved]
  - Streptococcal abscess [Recovered/Resolved]
